FAERS Safety Report 14669634 (Version 1)
Quarter: 2018Q1

REPORT INFORMATION
  Report Type: Spontaneous
  Country: ZA (occurrence: ZA)
  Receive Date: 20180322
  Receipt Date: 20180322
  Transmission Date: 20180509
  Serious: Yes (Other)
  Sender: FDA-Public Use
  Company Number: ZA-GLAXOSMITHKLINE-ZA2018048211

PATIENT
  Age: 64 Year
  Sex: Male

DRUGS (10)
  1. ARTHRO (DICLOFENAC SODIUM) [Suspect]
     Active Substance: DICLOFENAC SODIUM
     Indication: OSTEOARTHRITIS
     Dosage: 2.5 MG, QD
     Route: 065
  2. ERGOCALCIFEROL. [Concomitant]
     Active Substance: ERGOCALCIFEROL
     Indication: PRODUCT USED FOR UNKNOWN INDICATION
     Dosage: 50,000 UNIT TABS
     Route: 065
  3. ASPIRIN. [Concomitant]
     Active Substance: ASPIRIN
     Indication: PRODUCT USED FOR UNKNOWN INDICATION
     Dosage: 1.5 MG, QD
     Route: 065
  4. ZESTORETIC [Concomitant]
     Active Substance: HYDROCHLOROTHIAZIDE\LISINOPRIL
     Indication: PRODUCT USED FOR UNKNOWN INDICATION
     Dosage: 10 MG, QD
     Route: 065
  5. CATAFLAM [Suspect]
     Active Substance: DICLOFENAC POTASSIUM
     Indication: OSTEOARTHRITIS
     Dosage: UNK
     Route: 048
  6. ZOLPIDEM [Concomitant]
     Active Substance: ZOLPIDEM\ZOLPIDEM TARTRATE
     Indication: PRODUCT USED FOR UNKNOWN INDICATION
     Dosage: 7.5 MG, UNK
     Route: 065
  7. ASPAVOR [Concomitant]
     Active Substance: ATORVASTATIN
     Indication: HYPERCHOLESTEROLAEMIA
     Dosage: 80 MG, QD
     Route: 065
  8. XARELTO [Concomitant]
     Active Substance: RIVAROXABAN
     Indication: PRODUCT USED FOR UNKNOWN INDICATION
     Dosage: 20 MG, QD
     Route: 065
  9. PRITOR [Concomitant]
     Active Substance: TELMISARTAN
     Indication: PRODUCT USED FOR UNKNOWN INDICATION
     Dosage: 80 MG, QD
     Route: 065
  10. GLUCOPHAGE [Concomitant]
     Active Substance: METFORMIN HYDROCHLORIDE
     Indication: PRODUCT USED FOR UNKNOWN INDICATION
     Dosage: 500 MG, QD
     Route: 065

REACTIONS (15)
  - Platelet aggregation [Unknown]
  - Dyspnoea [Unknown]
  - Heart rate irregular [Unknown]
  - Drug tolerance decreased [Unknown]
  - Ventricular tachycardia [Unknown]
  - Lung disorder [Unknown]
  - Chest discomfort [Unknown]
  - Blood gases abnormal [Unknown]
  - Arteriospasm coronary [Unknown]
  - Lower respiratory tract infection [Unknown]
  - Central obesity [Unknown]
  - Essential hypertension [Unknown]
  - Dizziness [Unknown]
  - Hyperlipidaemia [Unknown]
  - Pallor [Unknown]

NARRATIVE: CASE EVENT DATE: 20180204
